FAERS Safety Report 6279655-5 (Version None)
Quarter: 2009Q3

REPORT INFORMATION
  Report Type: 
  Country: None (occurrence: None)
  Receive Date: 20090723
  Receipt Date: 20090119
  Transmission Date: 20100115
  Serious: Yes (Other)
  Sender: FDA-Public Use
  Company Number: SE-PFIZER INC-2009244098

PATIENT
  Age: 80 Year

DRUGS (1)
  1. ATARAX [Suspect]
     Indication: PRURITUS
     Dosage: 25 MG, AS NEEDED
     Route: 048
     Dates: start: 20080124, end: 20080128

REACTIONS (1)
  - HALLUCINATION, VISUAL [None]
